FAERS Safety Report 13989435 (Version 2)
Quarter: 2017Q4

REPORT INFORMATION
  Report Type: Report from Study
  Country: None (occurrence: US)
  Receive Date: 20170920
  Receipt Date: 20171004
  Transmission Date: 20180321
  Serious: Yes (Other)
  Sender: FDA-Public Use
  Company Number: US-ABBVIE-17K-163-2104270-00

PATIENT
  Sex: Female
  Weight: 61.74 kg

DRUGS (2)
  1. HUMIRA [Suspect]
     Active Substance: ADALIMUMAB
     Indication: CROHN^S DISEASE
     Route: 058
     Dates: start: 2007, end: 2015
  2. HUMIRA [Suspect]
     Active Substance: ADALIMUMAB
     Route: 058
     Dates: start: 2015

REACTIONS (15)
  - Crohn^s disease [Unknown]
  - Defaecation urgency [Unknown]
  - Abdominal pain upper [Unknown]
  - Back pain [Unknown]
  - Migraine [Unknown]
  - Irritable bowel syndrome [Not Recovered/Not Resolved]
  - Intestinal polyp [Unknown]
  - Frequent bowel movements [Unknown]
  - Gastrooesophageal reflux disease [Not Recovered/Not Resolved]
  - Therapeutic response shortened [Unknown]
  - Abdominal pain [Unknown]
  - Diarrhoea [Unknown]
  - Intestinal obstruction [Unknown]
  - Precancerous cells present [Unknown]
  - Injection site cellulitis [Recovering/Resolving]

NARRATIVE: CASE EVENT DATE: 2012
